FAERS Safety Report 19892340 (Version 1)
Quarter: 2021Q3

REPORT INFORMATION
  Report Type: Spontaneous
  Country: US (occurrence: US)
  Receive Date: 20210929
  Receipt Date: 20210929
  Transmission Date: 20211014
  Serious: Yes (Hospitalization, Other)
  Sender: FDA-Public Use
  Company Number: US-IPCA LABORATORIES LIMITED-IPC-2021-US-001678

PATIENT

DRUGS (2)
  1. CETIRIZINE [Suspect]
     Active Substance: CETIRIZINE HYDROCHLORIDE
     Indication: RHINITIS ALLERGIC
     Dosage: A ?HEAPING SPOONFUL? EQUATED TO BETWEEN 15 AND 20 ML (15?20 MG)
     Route: 065
  2. CETIRIZINE [Suspect]
     Active Substance: CETIRIZINE HYDROCHLORIDE
     Indication: CONDITION AGGRAVATED

REACTIONS (10)
  - Flushing [Recovering/Resolving]
  - Mydriasis [Recovering/Resolving]
  - Anticholinergic syndrome [Recovering/Resolving]
  - Hallucination, visual [Recovering/Resolving]
  - Hyperthermia [Recovering/Resolving]
  - Tachypnoea [Recovering/Resolving]
  - Accidental overdose [Unknown]
  - Agitation [Recovering/Resolving]
  - Tachycardia [Recovering/Resolving]
  - Urinary incontinence [Recovering/Resolving]
